FAERS Safety Report 25734922 (Version 1)
Quarter: 2025Q3

REPORT INFORMATION
  Report Type: Spontaneous
  Country: US (occurrence: None)
  Receive Date: 20250827
  Receipt Date: 20250827
  Transmission Date: 20251020
  Serious: Yes (Other)
  Sender: FDA-CTU
  Company Number: None

PATIENT
  Age: 36 Year
  Sex: Female
  Weight: 96.75 kg

DRUGS (6)
  1. CITALOPRAM [Suspect]
     Active Substance: CITALOPRAM
     Indication: Depression
     Dosage: OTHER QUANTITY : 1 TABLET(S);?FREQUENCY : DAILY;?
     Route: 048
     Dates: start: 20210101, end: 20230501
  2. LEXAPRO [Suspect]
     Active Substance: ESCITALOPRAM OXALATE
  3. SPIRONOLACTONE [Concomitant]
     Active Substance: SPIRONOLACTONE
  4. METFORMIN [Concomitant]
     Active Substance: METFORMIN HYDROCHLORIDE
  5. FISH OIL [Concomitant]
     Active Substance: FISH OIL
  6. VITAMIN D [Concomitant]
     Active Substance: VITAMIN D NOS

REACTIONS (5)
  - Sexual dysfunction [None]
  - Anhedonia [None]
  - Loss of libido [None]
  - Emotional disorder [None]
  - Agitation [None]

NARRATIVE: CASE EVENT DATE: 20230101
